FAERS Safety Report 17671597 (Version 1)
Quarter: 2020Q2

REPORT INFORMATION
  Report Type: Other
  Country: CA (occurrence: CA)
  Receive Date: 20200415
  Receipt Date: 20200415
  Transmission Date: 20200713
  Serious: Yes (Other)
  Sender: FDA-Public Use
  Company Number: CA-APOTEX-2020AP009931

PATIENT
  Age: 17 Year
  Sex: Male

DRUGS (3)
  1. ADVIL (MEFENAMIC ACID) [Suspect]
     Active Substance: MEFENAMIC ACID
     Indication: PROCEDURAL PAIN
     Dosage: UNK, (THERAPY DURATION: -7 UNIT UNKNOWN)
     Route: 048
  2. DICLOFENAC SODIUM. [Suspect]
     Active Substance: DICLOFENAC SODIUM
     Indication: PROCEDURAL PAIN
     Dosage: UNK (THERAPY DURATION: -7 UNIT UNKNOWN)
     Route: 065
  3. HUMIRA [Suspect]
     Active Substance: ADALIMUMAB
     Indication: CROHN^S DISEASE
     Dosage: 40 MG, UNK
     Route: 058

REACTIONS (3)
  - Crohn^s disease [Unknown]
  - Diarrhoea [Unknown]
  - Flatulence [Unknown]
